FAERS Safety Report 6265315-3 (Version None)
Quarter: 2009Q3

REPORT INFORMATION
  Report Type: 
  Country: None (occurrence: None)
  Receive Date: 20090708
  Receipt Date: 20090623
  Transmission Date: 20100115
  Serious: Yes (Other)
  Sender: FDA-Public Use
  Company Number: 8048544

PATIENT
  Age: 8 Year
  Sex: Female
  Weight: 29 kg

DRUGS (4)
  1. EQUASYM [Suspect]
     Indication: ATTENTION DEFICIT/HYPERACTIVITY DISORDER
     Dosage: 10 MG 1/D PO
     Route: 048
     Dates: start: 20090309, end: 20090512
  2. METHYLPHENIDATE HCL [Suspect]
     Indication: ATTENTION DEFICIT/HYPERACTIVITY DISORDER
     Dosage: 5 MG 2/D
     Dates: start: 20090101, end: 20090301
  3. PIRITON [Concomitant]
  4. INHALER [Concomitant]

REACTIONS (2)
  - CONTUSION [None]
  - EOSINOPHILIA [None]
